FAERS Safety Report 12659173 (Version 1)
Quarter: 2016Q3

REPORT INFORMATION
  Report Type: Spontaneous
  Country: US (occurrence: US)
  Receive Date: 20160817
  Receipt Date: 20160817
  Transmission Date: 20161109
  Serious: Yes (Hospitalization, Other)
  Sender: FDA-Public Use
  Company Number: PHEH2016US019419

PATIENT
  Age: 71 Year
  Sex: Male
  Weight: 88.2 kg

DRUGS (4)
  1. LASIX [Suspect]
     Active Substance: FUROSEMIDE
     Indication: PRODUCT USED FOR UNKNOWN INDICATION
     Route: 065
  2. ENTRESTO [Suspect]
     Active Substance: SACUBITRIL\VALSARTAN
     Indication: CARDIAC FAILURE
     Dosage: 50 MG, QD
     Route: 048
     Dates: start: 201509
  3. INSPRA [Suspect]
     Active Substance: EPLERENONE
     Indication: PRODUCT USED FOR UNKNOWN INDICATION
     Route: 065
  4. ENTRESTO [Suspect]
     Active Substance: SACUBITRIL\VALSARTAN
     Dosage: 50 MG, BID
     Route: 048
     Dates: start: 20151013, end: 20160309

REACTIONS (37)
  - Influenza [Unknown]
  - Red blood cell count decreased [Unknown]
  - High density lipoprotein decreased [Unknown]
  - Blood potassium decreased [Unknown]
  - Blood glucose increased [Unknown]
  - Blood lactic acid increased [Unknown]
  - Blood glucose decreased [Unknown]
  - Prothrombin time prolonged [Unknown]
  - Blood bilirubin increased [Recovered/Resolved]
  - Aspartate aminotransferase increased [Recovered/Resolved]
  - Neutrophil count increased [Recovered/Resolved]
  - Blood osmolarity increased [Recovered/Resolved]
  - Blood calcium decreased [Recovered/Resolved]
  - Prealbumin decreased [Unknown]
  - Acute kidney injury [Recovered/Resolved]
  - Urine output decreased [Unknown]
  - Blood alkaline phosphatase increased [Recovered/Resolved]
  - Lymphocyte count decreased [Recovered/Resolved]
  - Blood chloride decreased [Recovered/Resolved]
  - Carbon dioxide decreased [Recovered/Resolved]
  - Blood albumin decreased [Recovered/Resolved]
  - Troponin I increased [Unknown]
  - Blood lactate dehydrogenase increased [Unknown]
  - Dehydration [Unknown]
  - Brain natriuretic peptide increased [Unknown]
  - Anion gap increased [Unknown]
  - Inappropriate schedule of drug administration [Unknown]
  - Lethargy [Unknown]
  - Alanine aminotransferase increased [Recovered/Resolved]
  - Hypophagia [Unknown]
  - Red cell distribution width increased [Unknown]
  - C-reactive protein increased [Unknown]
  - Haemoglobin decreased [Unknown]
  - Haematocrit decreased [Unknown]
  - Mean cell haemoglobin concentration decreased [Unknown]
  - Protein total decreased [Recovered/Resolved]
  - Activated partial thromboplastin time prolonged [Unknown]

NARRATIVE: CASE EVENT DATE: 20151209
